FAERS Safety Report 25617304 (Version 1)
Quarter: 2025Q3

REPORT INFORMATION
  Report Type: Spontaneous
  Country: GB (occurrence: GB)
  Receive Date: 20250729
  Receipt Date: 20250729
  Transmission Date: 20251020
  Serious: Yes (Hospitalization, Other)
  Sender: SANDOZ
  Company Number: None

PATIENT
  Age: 67 Year
  Sex: Female

DRUGS (17)
  1. OLANZAPINE [Suspect]
     Active Substance: OLANZAPINE
     Indication: Product used for unknown indication
     Dosage: ONE TO BE TAKEN EVERY NIGHT,7 TABLET - VL4
     Route: 065
     Dates: start: 20250521
  2. ATORVASTATIN [Concomitant]
     Active Substance: ATORVASTATIN
     Indication: Product used for unknown indication
     Dosage: ONE TO BE TAKEN EACH DAY,7 TABLET - VL4
     Route: 065
     Dates: start: 20250521
  3. COCODAMOL [Concomitant]
     Active Substance: ACETAMINOPHEN\CODEINE PHOSPHATE
     Indication: Product used for unknown indication
     Dosage: 30MG/500MG TABLETS, ONE OR TWO TO BE TAKEN FOURTIMES A DAY WHEN REQUIRED,56 TABLET - 2 QDS
     Route: 065
     Dates: start: 20250521
  4. DIAZEPAM [Concomitant]
     Active Substance: DIAZEPAM
     Indication: Product used for unknown indication
     Dosage: ONE TO BE TAKEN AT NIGHT,7 TABLET - VL4
     Route: 065
     Dates: start: 20250521
  5. ACLIDINIUM BROMIDE [Concomitant]
     Active Substance: ACLIDINIUM BROMIDE
     Indication: Product used for unknown indication
     Dosage: 322MICROGRAMS/DOSE GENUAIR (COVIS PHARMA GMBH), ONE DOSETO BE INHALED TWICE A DAY (MONTHLY ISSUE - O
     Route: 065
     Dates: start: 20250514
  6. IBUPROFEN [Concomitant]
     Active Substance: IBUPROFEN
     Indication: Product used for unknown indication
     Dosage: 10% GEL, APPLY UP TO THREE TIMES A DAY,100 GRAM - PTSTATES NOT USING
     Route: 065
     Dates: start: 20241220
  7. LIDOCAINE [Concomitant]
     Active Substance: LIDOCAINE
     Indication: Product used for unknown indication
     Dosage: 700MG MEDICATED PLASTERS, APPLY ONCE DAILY FOR UP TO 12HOURS, FOLLOWED BY A 12-HOUR PLASTER-FREE PER
     Route: 065
  8. POLYETHYLENE GLYCOLS [Concomitant]
     Active Substance: POLYETHYLENE GLYCOLS
     Indication: Product used for unknown indication
     Dosage: COMPOUND ORAL POWDER SACHETS NPF SUGAR FREE, DISSOLVECONTENTS OF ONE SACHET IN HALF A GLASS (125ML)
     Route: 065
     Dates: start: 20250520
  9. MIRTAZAPINE [Concomitant]
     Active Substance: MIRTAZAPINE
     Indication: Product used for unknown indication
     Dosage: 15MG TABLETS, ONE TO BE TAKEN AT NIGHT,7 TABLET - VL4 BUTPT SAYS ITS TOO STRONG, SO DOESN^T TAKE
     Route: 065
     Dates: start: 20250521
  10. OMEPRAZOLE [Concomitant]
     Active Substance: OMEPRAZOLE
     Indication: Product used for unknown indication
     Dosage: UNK
     Route: 065
     Dates: start: 20250521
  11. PROPRANOLOL [Concomitant]
     Active Substance: PROPRANOLOL HYDROCHLORIDE
     Indication: Product used for unknown indication
     Dosage: ONE TO BE TAKEN THREE TIMES A DAY,21TABLET - VL1, VL2, VL4
     Route: 065
     Dates: start: 20250521
  12. SENNA [Concomitant]
     Active Substance: SENNOSIDES
     Indication: Product used for unknown indication
     Dosage: TWO TO BE TAKEN AT NIGHT,56 TABLET - ON
     Route: 065
     Dates: start: 20250521
  13. SERTRALINE [Concomitant]
     Active Substance: SERTRALINE HYDROCHLORIDE
     Indication: Product used for unknown indication
     Dosage: ONE TO BE TAKEN EACH DAY,7 TABLET - VL1
     Route: 065
     Dates: start: 20250521
  14. Syonell [Concomitant]
     Indication: Product used for unknown indication
     Dosage: ONE TO BE TAKEN EACH MORNING,7 TABLET OM - NOT IN BLISTER
     Route: 065
     Dates: start: 20250521
  15. Syonell [Concomitant]
     Dosage: ONE TO BE TAKEN IN THE MORNING AND TWO TO BE TAKEN AT NIGHT,21 TABLET - 1OM,2ON - NOT IN BLISTER
     Route: 065
     Dates: start: 20250521
  16. VENTOLIN [Concomitant]
     Active Substance: ALBUTEROL SULFATE
     Indication: Product used for unknown indication
     Route: 055
     Dates: start: 20250515
  17. ZOPICLONE [Concomitant]
     Active Substance: ZOPICLONE
     Indication: Product used for unknown indication
     Dosage: ONE TO BE TAKEN AT NIGHT,7 TABLET - VL4
     Route: 065
     Dates: start: 20250521

REACTIONS (1)
  - Colitis ischaemic [Recovered/Resolved]
